FAERS Safety Report 24120814 (Version 1)
Quarter: 2024Q3

REPORT INFORMATION
  Report Type: Spontaneous
  Country: US (occurrence: US)
  Receive Date: 20240722
  Receipt Date: 20240722
  Transmission Date: 20241017
  Serious: Yes (Other)
  Sender: PARATEK PHARMACEUTICALS
  Company Number: US-PARATEK PHARMACEUTICALS, INC.-2024PTK00579

PATIENT
  Sex: Male

DRUGS (1)
  1. NUZYRA [Suspect]
     Active Substance: OMADACYCLINE
     Indication: Limb injury
     Dosage: 450 MG, 1X/DAY (THREE TABLETS ON DAY 1 AND DAY 2)
     Route: 048

REACTIONS (2)
  - Cerebrovascular accident [Unknown]
  - Blood pressure increased [Unknown]
